FAERS Safety Report 7992527-0 (Version None)
Quarter: 2011Q4

REPORT INFORMATION
  Report Type: 
  Country: None (occurrence: None)
  Receive Date: 20111219
  Receipt Date: 20111212
  Transmission Date: 20120403
  Serious: Yes (Hospitalization)
  Sender: FDA-Public Use
  Company Number: US-PFIZER INC-US-WYE-H07238408

PATIENT
  Sex: Female
  Weight: 89.4 kg

DRUGS (18)
  1. ABILIFY [Suspect]
     Dosage: 15 MG, 2X/DAY
     Route: 065
  2. BLINDED PLACEBO [Suspect]
     Indication: MENOPAUSAL SYMPTOMS
     Dosage: BLINDED THERAPY DAILY
     Route: 048
     Dates: start: 20080909, end: 20081122
  3. FLUTICASONE PROPIONATE [Suspect]
     Dosage: 2 SPRAYS DAILY
     Route: 065
  4. VICODIN [Suspect]
     Dosage: 5/500 PRN
     Route: 065
  5. AMBIEN [Suspect]
     Dosage: 10 MG, 1X/DAY
     Route: 048
  6. BLINDED DESVENLAFAXINE SUCCINATE MONOHYDRATE [Suspect]
     Indication: MENOPAUSAL SYMPTOMS
     Dosage: BLINDED THERAPY DAILY
     Route: 048
     Dates: start: 20080909, end: 20081122
  7. LYRICA [Suspect]
     Dosage: 75 MG, 1X/DAY
     Route: 065
  8. VIVELLE [Suspect]
     Dosage: 0.1 MG, UNK
     Route: 062
  9. BLINDED DESVENLAFAXINE SUCCINATE MONOHYDRATE [Suspect]
     Dosage: BLINDED THERAPY DAILY
     Route: 048
     Dates: start: 20081129, end: 20081224
  10. BLINDED NO SUBJECT DRUG [Suspect]
     Dosage: BLINDED THERAPY DAILY
     Route: 048
     Dates: start: 20081129, end: 20081224
  11. ROBAXIN [Suspect]
     Dosage: 750 MG, 3X/DAY
     Route: 048
  12. BLINDED PLACEBO [Suspect]
     Dosage: BLINDED THERAPY DAILY
     Route: 048
     Dates: start: 20081129, end: 20081224
  13. IBUPROFEN [Suspect]
     Dosage: 800 MG, 3X/DAY
     Route: 065
  14. CLONAZEPAM [Suspect]
     Dosage: 1 MG, 2X/DAY
     Route: 065
  15. LORATADINE [Suspect]
     Dosage: 10 MG, 1X/DAY
     Route: 065
  16. ZESTORETIC [Suspect]
     Dosage: 20/12.5 DAILY
     Route: 065
  17. BLINDED NO SUBJECT DRUG [Suspect]
     Indication: MENOPAUSAL SYMPTOMS
     Dosage: BLINDED THERAPY DAILY
     Route: 048
     Dates: start: 20080909, end: 20081122
  18. LEXAPRO [Suspect]
     Dosage: 20 MG, 1X/DAY
     Route: 065

REACTIONS (6)
  - DYSARTHRIA [None]
  - MENTAL STATUS CHANGES [None]
  - HYPOKALAEMIA [None]
  - HYPERTENSION [None]
  - CONDITION AGGRAVATED [None]
  - POLYMEDICATION [None]
